FAERS Safety Report 13528896 (Version 2)
Quarter: 2017Q2

REPORT INFORMATION
  Report Type: Spontaneous
  Country: IT (occurrence: IT)
  Receive Date: 20170509
  Receipt Date: 20170516
  Transmission Date: 20170830
  Serious: Yes (Hospitalization, Other)
  Sender: FDA-Public Use
  Company Number: IT-GILEAD-2017-0271384

PATIENT
  Age: 57 Year
  Sex: Female

DRUGS (1)
  1. HARVONI [Suspect]
     Active Substance: LEDIPASVIR\SOFOSBUVIR
     Indication: LIVER DISORDER
     Dosage: 1 DF, QD
     Route: 048
     Dates: start: 20170130, end: 20170422

REACTIONS (1)
  - Jaundice cholestatic [Unknown]

NARRATIVE: CASE EVENT DATE: 20170422
